FAERS Safety Report 16204043 (Version 2)
Quarter: 2020Q1

REPORT INFORMATION
  Report Type: Spontaneous
  Country: US (occurrence: US)
  Receive Date: 20190416
  Receipt Date: 20200320
  Transmission Date: 20200409
  Serious: No
  Sender: FDA-Public Use
  Company Number: US-MYLANLABS-2019M1028334

PATIENT
  Age: 14 Year
  Sex: Male
  Weight: 73 kg

DRUGS (1)
  1. VUSION [Suspect]
     Active Substance: MICONAZOLE NITRATE\PETROLATUM\ZINC OXIDE
     Indication: TINEA INFECTION
     Dosage: 25 PERCENT, BID
     Route: 061
     Dates: start: 20190322, end: 20190324

REACTIONS (4)
  - Application site erythema [Recovered/Resolved]
  - Application site inflammation [Recovered/Resolved]
  - Drug ineffective for unapproved indication [Not Recovered/Not Resolved]
  - Application site irritation [Recovered/Resolved]

NARRATIVE: CASE EVENT DATE: 20190322
